FAERS Safety Report 5009872-3 (Version None)
Quarter: 2006Q2

REPORT INFORMATION
  Report Type: 
  Country: None (occurrence: None)
  Receive Date: 20060522
  Receipt Date: 20060511
  Transmission Date: 20061013
  Serious: Yes (Hospitalization)
  Sender: FDA-Public Use
  Company Number: GXKR2006CZ02785

PATIENT
  Age: 25 Year
  Sex: Female

DRUGS (1)
  1. OSPEN (NGX) (PHENOXYMETHYLPENICILLIN (=PENICILLIN V)) TABLET [Suspect]
     Indication: UPPER RESPIRATORY TRACT INFLAMMATION
     Dosage: 1500 MG, Q8H, ORAL
     Route: 048
     Dates: start: 20060419, end: 20060429

REACTIONS (3)
  - BLISTER [None]
  - JOINT SWELLING [None]
  - URTICARIA [None]
